FAERS Safety Report 5297052-6 (Version None)
Quarter: 2007Q1

REPORT INFORMATION
  Report Type: 
  Country: None (occurrence: None)
  Receive Date: 20070201
  Receipt Date: 20061003
  Transmission Date: 20070707
  Serious: No
  Sender: FDA-Public Use
  Company Number: 2006PV022468

PATIENT
  Age: 60 Year
  Sex: Female
  Weight: 63.9572 kg

DRUGS (4)
  1. BYETTA [Suspect]
     Indication: DIABETES MELLITUS NON-INSULIN-DEPENDENT
     Dosage: SEE IMAGE
     Dates: start: 20060601, end: 20060601
  2. BYETTA [Suspect]
     Indication: DIABETES MELLITUS NON-INSULIN-DEPENDENT
     Dosage: SEE IMAGE
     Dates: start: 20060701
  3. METFORMIN HCL [Concomitant]
  4. CITRUCEL [Concomitant]

REACTIONS (8)
  - ANOREXIA [None]
  - CONSTIPATION [None]
  - DIARRHOEA [None]
  - DYSPEPSIA [None]
  - NASAL CONGESTION [None]
  - NAUSEA [None]
  - SNEEZING [None]
  - WEIGHT DECREASED [None]
